FAERS Safety Report 18970110 (Version 1)
Quarter: 2021Q1

REPORT INFORMATION
  Report Type: Spontaneous
  Country: US (occurrence: US)
  Receive Date: 20210304
  Receipt Date: 20210304
  Transmission Date: 20210420
  Serious: No
  Sender: FDA-Public Use
  Company Number: US-AMRYT PHARMACEUTICALS DAC-AEGR005049

PATIENT
  Sex: Female
  Weight: 39.96 kg

DRUGS (4)
  1. ADMELOG [Concomitant]
     Active Substance: INSULIN LISPRO
     Indication: PRODUCT USED FOR UNKNOWN INDICATION
  2. MYALEPT [Suspect]
     Active Substance: METRELEPTIN
     Indication: LIPODYSTROPHY ACQUIRED
     Dosage: 5 MILLIGRAM (1 ML), QD
     Route: 058
  3. INSULIN [Concomitant]
     Active Substance: INSULIN NOS
     Indication: PRODUCT USED FOR UNKNOWN INDICATION
  4. OMEGA?3 FATTY ACIDS [Concomitant]
     Active Substance: OMEGA-3 FATTY ACIDS
     Indication: PRODUCT USED FOR UNKNOWN INDICATION

REACTIONS (2)
  - Product dose omission issue [Unknown]
  - No adverse event [Unknown]
